FAERS Safety Report 19821472 (Version 1)
Quarter: 2021Q3

REPORT INFORMATION
  Report Type: Spontaneous
  Country: US (occurrence: US)
  Receive Date: 20210913
  Receipt Date: 20210913
  Transmission Date: 20211014
  Serious: Yes (Other)
  Sender: FDA-Public Use
  Company Number: US-ACCORD-237737

PATIENT
  Sex: Male
  Weight: 88.7 kg

DRUGS (1)
  1. ETOPOSIDE. [Suspect]
     Active Substance: ETOPOSIDE
     Indication: PRODUCT USED FOR UNKNOWN INDICATION

REACTIONS (5)
  - Bacterial infection [Unknown]
  - Sepsis [Unknown]
  - Febrile neutropenia [Unknown]
  - Staphylococcal infection [Unknown]
  - Bacteraemia [Unknown]
